FAERS Safety Report 7339882-2 (Version None)
Quarter: 2011Q1

REPORT INFORMATION
  Report Type: 
  Country: None (occurrence: None)
  Receive Date: 20110228
  Receipt Date: 20110211
  Transmission Date: 20110831
  Serious: Yes (Other)
  Sender: FDA-Public Use
  Company Number: 027321

PATIENT
  Sex: Female

DRUGS (3)
  1. VIMPAT [Suspect]
     Indication: TEMPORAL LOBE EPILEPSY
     Dosage: 200 MG;
     Dates: start: 20100401
  2. KEPPRA [Suspect]
     Indication: TEMPORAL LOBE EPILEPSY
     Dosage: 2000 MG, (100 MG)
     Dates: start: 20090101
  3. KEPPRA [Suspect]
     Indication: TEMPORAL LOBE EPILEPSY
     Dosage: 2000 MG, (100 MG)
     Dates: start: 20050101, end: 20090101

REACTIONS (3)
  - CONVULSION [None]
  - DIZZINESS [None]
  - LEUKOPENIA [None]
